FAERS Safety Report 8634720 (Version 3)
Quarter: 2013Q3

REPORT INFORMATION
  Report Type: Spontaneous
  Country: US (occurrence: US)
  Receive Date: 20120626
  Receipt Date: 20130724
  Transmission Date: 20140515
  Serious: Yes (Hospitalization, Other)
  Sender: FDA-Public Use
  Company Number: US-BAYER-2012-062066

PATIENT
  Age: 49 Year
  Sex: Female
  Weight: 105.67 kg

DRUGS (11)
  1. YAZ [Suspect]
     Indication: ACNE
     Dosage: UNK
     Dates: start: 20070326, end: 200707
  2. YAZ [Suspect]
     Indication: MENSTRUAL CYCLE MANAGEMENT
  3. YASMIN [Suspect]
     Indication: DYSFUNCTIONAL UTERINE BLEEDING
     Dosage: UNK
     Dates: start: 200703, end: 200707
  4. YASMIN [Suspect]
     Indication: MENOMETRORRHAGIA
  5. YASMIN [Suspect]
     Indication: ACNE
  6. CYMBALTA [Concomitant]
     Indication: DEPRESSION
     Dosage: 30 MG, QD
     Route: 048
     Dates: start: 2006
  7. MICARDIS HCT [Concomitant]
     Indication: HYPERTENSION
     Dosage: 20/125 QD
     Route: 048
     Dates: start: 200707
  8. IBUPROFEN [Concomitant]
     Dosage: 600 MG, Q6 (EVERY 6 HOURS) AS NEEDED.
     Dates: start: 20070717
  9. HYZAAR [Concomitant]
     Indication: BLOOD PRESSURE INCREASED
     Dosage: 10 MG, DAILY
     Dates: end: 20070717
  10. ASPIRIN [Concomitant]
     Indication: THROMBOSIS PROPHYLAXIS
     Dosage: 81 MG, DAILY
  11. PROVERA [Concomitant]
     Indication: AMENORRHOEA

REACTIONS (10)
  - Pulmonary embolism [Recovered/Resolved]
  - Cholelithiasis [None]
  - Injury [None]
  - Pain [None]
  - Pain [None]
  - Off label use [None]
  - Dyspnoea [Recovered/Resolved]
  - Blood pressure increased [Recovered/Resolved]
  - Fatigue [Recovered/Resolved]
  - Menorrhagia [None]
